FAERS Safety Report 9526116 (Version 1)
Quarter: 2013Q1

REPORT INFORMATION
  Report Type: Spontaneous
  Country: US (occurrence: None)
  Receive Date: 20130314
  Receipt Date: 20130314
  Transmission Date: 20140127
  Serious: No
  Sender: FDA-Public Use
  Company Number: 1209USA007074

PATIENT
  Age: 54 Year
  Sex: Female

DRUGS (3)
  1. PEGINTRON [Suspect]
     Indication: HEPATITIS C
     Dates: start: 20120625
  2. RIBAVIRIN (RIBAVIRIN) CAPSULE [Suspect]
     Indication: HEPATITIS C
     Dosage: 6 DF, QD
     Dates: start: 20120625, end: 2012
  3. VICTRELIS [Suspect]
     Indication: HEPATITIS C
     Dates: start: 20121025

REACTIONS (3)
  - Anaemia [None]
  - Haemoglobin decreased [None]
  - Leukopenia [None]
